FAERS Safety Report 5233662-X (Version None)
Quarter: 2007Q1

REPORT INFORMATION
  Report Type: 
  Country: None (occurrence: None)
  Receive Date: 20061208
  Receipt Date: 20060223
  Transmission Date: 20070707
  Serious: Yes (Other)
  Sender: FDA-Public Use
  Company Number: 2006UW03132

PATIENT
  Age: 64 Year
  Sex: Male
  Weight: 77.564 kg

DRUGS (3)
  1. CRESTOR [Suspect]
     Indication: BLOOD CHOLESTEROL INCREASED
     Dosage: 10 MG PO
     Route: 048
     Dates: start: 20060211
  2. ASPIRIN [Concomitant]
  3. PHENYLEPHRINE [Concomitant]

REACTIONS (3)
  - FATIGUE [None]
  - FEELING COLD [None]
  - PYREXIA [None]
